FAERS Safety Report 22276161 (Version 1)
Quarter: 2023Q2

REPORT INFORMATION
  Report Type: Report from Study
  Country: GB (occurrence: GB)
  Receive Date: 20230502
  Receipt Date: 20230502
  Transmission Date: 20230721
  Serious: Yes (Hospitalization)
  Sender: FDA-Public Use
  Company Number: GB-BoehringerIngelheim-2023-BI-234950

PATIENT
  Age: 67 Year
  Sex: Female

DRUGS (1)
  1. OFEV [Suspect]
     Active Substance: NINTEDANIB
     Indication: Product used for unknown indication
     Dates: start: 202104

REACTIONS (3)
  - COVID-19 [Unknown]
  - Chronic obstructive pulmonary disease [Unknown]
  - Fibrosis [Unknown]

NARRATIVE: CASE EVENT DATE: 20230501
